FAERS Safety Report 12881273 (Version 3)
Quarter: 2017Q2

REPORT INFORMATION
  Report Type: Spontaneous
  Country: US (occurrence: US)
  Receive Date: 20161025
  Receipt Date: 20170607
  Transmission Date: 20170830
  Serious: Yes (Other)
  Sender: FDA-Public Use
  Company Number: US-JNJFOC-20160921312

PATIENT
  Sex: Male

DRUGS (2)
  1. RISPERDAL [Suspect]
     Active Substance: RISPERIDONE
     Indication: SCHIZOAFFECTIVE DISORDER
     Route: 048
  2. RISPERDAL [Suspect]
     Active Substance: RISPERIDONE
     Indication: MENTAL DISORDER
     Route: 048

REACTIONS (5)
  - Blood prolactin increased [Recovering/Resolving]
  - Sedation [Unknown]
  - Gynaecomastia [Not Recovered/Not Resolved]
  - Diabetes mellitus [Recovering/Resolving]
  - Obesity [Recovering/Resolving]

NARRATIVE: CASE EVENT DATE: 2000
